FAERS Safety Report 8607797 (Version 5)
Quarter: 2014Q2

REPORT INFORMATION
  Report Type: Spontaneous
  Country: US (occurrence: US)
  Receive Date: 20120611
  Receipt Date: 20140401
  Transmission Date: 20141212
  Serious: Yes (Hospitalization, Disabling)
  Sender: FDA-Public Use
  Company Number: US-ASTRAZENECA-2012SE35299

PATIENT
  Age: 47 Year
  Sex: Female

DRUGS (22)
  1. RANITIDINE HCL [Concomitant]
     Dosage: 300 MG TABLET AS DIRECTED
     Dates: start: 20120326
  2. SINGULAIR [Concomitant]
     Dates: start: 20120326
  3. VIMOVA [Concomitant]
     Indication: ARTHRITIS
  4. PREVACID [Concomitant]
     Dosage: DAILY OR AS NEEDED
     Dates: start: 1980
  5. PANTOPRAZOLE [Concomitant]
     Route: 048
     Dates: start: 20090330
  6. MELOXICAM [Concomitant]
     Route: 048
     Dates: start: 20090527
  7. PROTONIX [Concomitant]
     Route: 048
     Dates: start: 20090330
  8. ENJUVIA [Concomitant]
     Route: 048
     Dates: start: 20080515
  9. LYRICA [Concomitant]
     Route: 048
     Dates: start: 20100518
  10. FEXOFENADINE [Concomitant]
     Route: 048
     Dates: start: 20100610
  11. FLUCONAZOLE [Concomitant]
     Route: 048
     Dates: start: 20100907
  12. NEXIUM [Suspect]
     Indication: GASTROOESOPHAGEAL REFLUX DISEASE
     Dosage: 2 TIMES PER DAY
     Route: 048
  13. NEXIUM [Suspect]
     Indication: GASTROOESOPHAGEAL REFLUX DISEASE
     Route: 048
     Dates: start: 20090625
  14. PRILOSEC [Suspect]
     Indication: GASTROOESOPHAGEAL REFLUX DISEASE
     Route: 048
  15. PRILOSEC [Suspect]
     Indication: GASTROOESOPHAGEAL REFLUX DISEASE
     Route: 048
     Dates: start: 20090402
  16. TYLENOL [Concomitant]
     Indication: PAIN
  17. MOTRIN [Concomitant]
     Indication: PAIN
  18. EVISTA [Concomitant]
     Dates: start: 20120326
  19. COVARYX HS [Concomitant]
     Dosage: 0.625-1.25 MG ONE TABLET DAILY
     Dates: start: 20120326
  20. BI-EST/PROGESTERON [Concomitant]
     Dosage: 2.5 MG AND 50 MG COMPOUND TABLET ONE TABLET DAILY
     Dates: start: 20120326
  21. VIMOVO [Concomitant]
     Dosage: 500/20 ONE TABLET TWO TIMES A DAY
     Dates: start: 20120326
  22. HYDROCODONE ACETAMINOPHEN [Concomitant]
     Indication: PAIN
     Dosage: 5-500 MG ONE TABLET AS NEEDED EVERY SIX HOURS
     Dates: start: 20120326

REACTIONS (19)
  - Ligament sprain [Unknown]
  - Thyroid neoplasm [Unknown]
  - Lipoma [Unknown]
  - Bone disorder [Unknown]
  - Osteoporosis [Unknown]
  - Multiple fractures [Unknown]
  - Osteoarthritis [Unknown]
  - Exostosis [Unknown]
  - Foot fracture [Unknown]
  - Arthritis [Unknown]
  - Osteogenesis imperfecta [Unknown]
  - Calcium deficiency [Unknown]
  - Depression [Unknown]
  - Hypothyroidism [Unknown]
  - Bone density decreased [Unknown]
  - Vitamin D deficiency [Unknown]
  - Osteoporotic fracture [Unknown]
  - Nervous system disorder [Unknown]
  - Osteopenia [Unknown]
